FAERS Safety Report 7863863-3 (Version None)
Quarter: 2011Q4

REPORT INFORMATION
  Report Type: 
  Country: None (occurrence: None)
  Receive Date: 20111028
  Receipt Date: 20111019
  Transmission Date: 20120403
  Serious: No
  Sender: FDA-Public Use
  Company Number: US-BIOGENIDEC-2011BI035292

PATIENT
  Age: 41 Year
  Sex: Female

DRUGS (2)
  1. NEURONTIN [Concomitant]
  2. TYSABRI [Suspect]
     Indication: MULTIPLE SCLEROSIS
     Route: 042
     Dates: start: 20110328

REACTIONS (11)
  - FATIGUE [None]
  - COGNITIVE DISORDER [None]
  - BLOOD PRESSURE INCREASED [None]
  - GAIT DISTURBANCE [None]
  - HEAD INJURY [None]
  - DISORIENTATION [None]
  - BLOOD GLUCOSE DECREASED [None]
  - MULTIPLE SCLEROSIS [None]
  - FEELING COLD [None]
  - HEADACHE [None]
  - ROAD TRAFFIC ACCIDENT [None]
